FAERS Safety Report 8590225-6 (Version None)
Quarter: 2012Q3

REPORT INFORMATION
  Report Type: 
  Country: None (occurrence: None)
  Receive Date: 20120813
  Receipt Date: 20120803
  Transmission Date: 20120928
  Serious: Yes (Other)
  Sender: FDA-Public Use
  Company Number: US-ROCHE-769761

PATIENT
  Age: 66 Year
  Sex: Female
  Weight: 84.6 kg

DRUGS (6)
  1. VISMODEGIB [Suspect]
     Dosage: LAST DOSE ON 01/MAR/2011
     Route: 048
  2. ETOPOSIDE [Suspect]
     Dosage: 100 MG/M2, QDX3D/21DC
     Route: 042
  3. ETOPOSIDE [Suspect]
     Indication: SMALL CELL LUNG CANCER STAGE UNSPECIFIED
     Dosage: 100 MG/M2, QDX3D/21DC
     Route: 042
     Dates: start: 20101210, end: 20101231
  4. CISPLATIN [Suspect]
     Dosage: 75 MG/M2, Q21D
     Route: 042
  5. VISMODEGIB [Suspect]
     Indication: SMALL CELL LUNG CANCER STAGE UNSPECIFIED
     Dosage: LAST DOSE ADMINISTERED ON 03/01/2011
     Route: 048
  6. CISPLATIN [Suspect]
     Indication: SMALL CELL LUNG CANCER STAGE UNSPECIFIED
     Dosage: 75 MG/M2, Q21D
     Route: 042
     Dates: start: 20101210, end: 20101229

REACTIONS (7)
  - ASTHENIA [None]
  - ANAEMIA [None]
  - ALOPECIA [None]
  - PLATELET COUNT DECREASED [None]
  - NAUSEA [None]
  - FATIGUE [None]
  - WEIGHT DECREASED [None]
